FAERS Safety Report 7952742-9 (Version None)
Quarter: 2011Q4

REPORT INFORMATION
  Report Type: 
  Country: None (occurrence: None)
  Receive Date: 20111201
  Receipt Date: 20111124
  Transmission Date: 20120403
  Serious: Yes (Hospitalization, Other)
  Sender: FDA-Public Use
  Company Number: JP-CEPHALON-2011004991

PATIENT
  Sex: Male
  Weight: 63 kg

DRUGS (11)
  1. BENDAMUSTINE HCL [Suspect]
     Indication: MANTLE CELL LYMPHOMA
     Route: 042
     Dates: start: 20110714
  2. BROTIZOLAM [Concomitant]
  3. CILOSTAZOL [Concomitant]
  4. MAGNESIUM OXIDE [Concomitant]
  5. FUROSEMIDE [Concomitant]
  6. DIGOXIN [Concomitant]
  7. NICORANDIL [Concomitant]
  8. BISOPROLOL FUMARATE [Concomitant]
  9. WARFARIN SODIUM [Concomitant]
  10. RITUXIMAB [Concomitant]
  11. FAMOTIDINE [Concomitant]

REACTIONS (3)
  - PNEUMONIA [None]
  - NEUTROPHIL COUNT DECREASED [None]
  - BACTERAEMIA [None]
